FAERS Safety Report 9560397 (Version 1)
Quarter: 2013Q3

REPORT INFORMATION
  Report Type: Spontaneous
  Country: IN (occurrence: IN)
  Receive Date: 20130927
  Receipt Date: 20130927
  Transmission Date: 20140515
  Serious: Yes (Life-Threatening, Other)
  Sender: FDA-Public Use
  Company Number: IN-ROCHE-1281004

PATIENT
  Age: 28 Year
  Sex: Male

DRUGS (1)
  1. METALYSE [Suspect]
     Indication: PULMONARY EMBOLISM
     Dosage: 30 MG, BOLUS
     Route: 042

REACTIONS (4)
  - Condition aggravated [Recovered/Resolved]
  - Hypotension [Recovered/Resolved]
  - Hypoxia [Recovered/Resolved]
  - Hyperhidrosis [Recovered/Resolved]
